FAERS Safety Report 4373415-8 (Version None)
Quarter: 2004Q2

REPORT INFORMATION
  Report Type: 
  Country: None (occurrence: None)
  Receive Date: 20040603
  Receipt Date: 20040524
  Transmission Date: 20050107
  Serious: Yes (Hospitalization)
  Sender: FDA-Public Use
  Company Number: 2004215470GB

PATIENT
  Age: 59 Year
  Sex: Male

DRUGS (6)
  1. CABASER (CABERGOLINE) TABLET, 1-4MG [Suspect]
     Indication: PARKINSON'S DISEASE
     Dosage: 4 MG/DAY, ORAL
     Route: 048
     Dates: start: 20020401, end: 20020601
  2. PERGOLIDE MESYLATE [Suspect]
     Indication: PARKINSON'S DISEASE
     Dosage: 4MG/DAY, ORAL
     Route: 048
     Dates: start: 20010101, end: 20020601
  3. SINEMET [Concomitant]
  4. DIGOXIN [Concomitant]
  5. APOMORPHINE (APOMORPHINE) [Concomitant]
  6. CLONAZEPAM [Concomitant]

REACTIONS (1)
  - AORTIC VALVE INCOMPETENCE [None]
